FAERS Safety Report 18628370 (Version 7)
Quarter: 2023Q4

REPORT INFORMATION
  Report Type: Spontaneous
  Country: JP (occurrence: JP)
  Receive Date: 20201217
  Receipt Date: 20231106
  Transmission Date: 20240109
  Serious: Yes (Hospitalization, Other)
  Sender: FDA-Public Use
  Company Number: JP-OTSUKA-2020_029925AA

PATIENT
  Sex: Male

DRUGS (12)
  1. ABILIFY [Suspect]
     Active Substance: ARIPIPRAZOLE
     Indication: Schizophrenia
     Dosage: 400 MG, QM
     Route: 065
  2. ABILIFY [Suspect]
     Active Substance: ARIPIPRAZOLE
     Indication: Bipolar disorder
     Dosage: UNK
     Route: 065
     Dates: start: 20220610
  3. ABILIFY [Suspect]
     Active Substance: ARIPIPRAZOLE
     Indication: Schizophrenia
     Dosage: UNK
     Route: 048
  4. ABILIFY [Suspect]
     Active Substance: ARIPIPRAZOLE
     Indication: Bipolar disorder
  5. REXULTI [Suspect]
     Active Substance: BREXPIPRAZOLE
     Indication: Schizophrenia
     Dosage: 1 MG, UNK
     Route: 048
  6. REXULTI [Suspect]
     Active Substance: BREXPIPRAZOLE
     Indication: Bipolar disorder
  7. ABILIFY MAINTENA [Suspect]
     Active Substance: ARIPIPRAZOLE
     Indication: Schizophrenia
     Dosage: UNK
     Route: 065
  8. ABILIFY MAINTENA [Suspect]
     Active Substance: ARIPIPRAZOLE
     Indication: Bipolar disorder
  9. LITHIUM CARBONATE [Suspect]
     Active Substance: LITHIUM CARBONATE
     Indication: Schizophrenia
     Dosage: 900 MG, UNK
     Route: 048
  10. LITHIUM CARBONATE [Suspect]
     Active Substance: LITHIUM CARBONATE
     Indication: Bipolar disorder
     Dosage: UNK (RESUMED DOSE)
     Route: 048
  11. LITHIUM CARBONATE [Suspect]
     Active Substance: LITHIUM CARBONATE
     Dosage: UNK
     Route: 048
  12. LITHIUM CARBONATE [Suspect]
     Active Substance: LITHIUM CARBONATE
     Dosage: UNK
     Route: 048

REACTIONS (22)
  - Appendicitis [Unknown]
  - Dizziness [Unknown]
  - Otitis media [Unknown]
  - Disease recurrence [Recovered/Resolved]
  - Malaise [Unknown]
  - Dysarthria [Unknown]
  - Tension [Unknown]
  - Increased appetite [Unknown]
  - Salivary hypersecretion [Unknown]
  - Asthenia [Unknown]
  - Hepatic function abnormal [Unknown]
  - Speech disorder [Unknown]
  - Weight decreased [Unknown]
  - Constipation [Unknown]
  - Fatigue [Unknown]
  - Tremor [Unknown]
  - Weight increased [Unknown]
  - Somnolence [Unknown]
  - Somnolence [Unknown]
  - Diarrhoea [Unknown]
  - Dizziness [Unknown]
  - Product use in unapproved indication [Unknown]
